FAERS Safety Report 6506212-5 (Version None)
Quarter: 2009Q4

REPORT INFORMATION
  Report Type: 
  Country: None (occurrence: None)
  Receive Date: 20091218
  Receipt Date: 20091208
  Transmission Date: 20100525
  Serious: Yes (Congenital Anomaly)
  Sender: FDA-Public Use
  Company Number: PHHY2009DE54688

PATIENT

DRUGS (1)
  1. LEPONEX [Suspect]
     Dosage: MATERNAL DOSE: 6.5 MG, DAILY
     Route: 064

REACTIONS (2)
  - DISABILITY [None]
  - DRUG EXPOSURE DURING PREGNANCY [None]
